FAERS Safety Report 24548718 (Version 1)
Quarter: 2024Q4

REPORT INFORMATION
  Report Type: Spontaneous
  Country: CN (occurrence: CN)
  Receive Date: 20241025
  Receipt Date: 20241025
  Transmission Date: 20250115
  Serious: Yes (Other)
  Sender: PFIZER
  Company Number: CN-PFIZER INC-PV202400137154

PATIENT
  Age: 10 Year
  Sex: Female

DRUGS (2)
  1. CYTARABINE [Suspect]
     Active Substance: CYTARABINE
     Indication: Chemotherapy
     Dosage: 300 MG, 1X/DAY
     Route: 041
     Dates: start: 20241016, end: 20241016
  2. CYTARABINE [Suspect]
     Active Substance: CYTARABINE
     Indication: Neoplasm malignant

REACTIONS (2)
  - Pyrexia [Recovering/Resolving]
  - Neutrophil percentage increased [Recovering/Resolving]

NARRATIVE: CASE EVENT DATE: 20241017
